FAERS Safety Report 26105887 (Version 1)
Quarter: 2025Q4

REPORT INFORMATION
  Report Type: Spontaneous
  Country: EU (occurrence: EU)
  Receive Date: 20251201
  Receipt Date: 20251201
  Transmission Date: 20260117
  Serious: Yes (Hospitalization)
  Sender: TEVA
  Company Number: None

PATIENT
  Age: 85 Year
  Sex: Female
  Weight: 51 kg

DRUGS (5)
  1. FLUCONAZOLE [Suspect]
     Active Substance: FLUCONAZOLE
     Indication: Skin candida
     Dosage: FLUCONAZOLE (2432A)
     Route: 048
     Dates: start: 20250822, end: 20250901
  2. PIPERACILLIN AND TAZOBACTAM [Suspect]
     Active Substance: PIPERACILLIN SODIUM\TAZOBACTAM SODIUM
     Indication: Skin infection
     Dosage: 12 GRAMS/1.5 GRAMS BY CONTINUOUS INFUSION WITH INFUSION PUMP AT HOME
     Route: 042
     Dates: start: 20250818, end: 20250825
  3. PIPERACILLIN AND TAZOBACTAM [Suspect]
     Active Substance: PIPERACILLIN SODIUM\TAZOBACTAM SODIUM
     Indication: Skin infection
     Route: 042
     Dates: start: 20250826, end: 20250901
  4. AMOXICILLIN [Suspect]
     Active Substance: AMOXICILLIN
     Indication: Skin infection
     Dosage: 1 GRAM EVERY 8 HOURS. AMOXICILLIN (108A)
     Route: 048
     Dates: start: 20250812, end: 20250818
  5. DOXYCYCLINE [Suspect]
     Active Substance: DOXYCYCLINE
     Indication: Skin infection
     Dosage: DOXYCYCLINE (1395A)
     Route: 048
     Dates: start: 20250812, end: 20250818

REACTIONS (1)
  - Clostridium difficile colitis [Recovered/Resolved]

NARRATIVE: CASE EVENT DATE: 20250913
